FAERS Safety Report 17829335 (Version 1)
Quarter: 2020Q2

REPORT INFORMATION
  Report Type: Spontaneous
  Country: US (occurrence: US)
  Receive Date: 20200527
  Receipt Date: 20200527
  Transmission Date: 20200714
  Serious: No
  Sender: FDA-Public Use
  Company Number: None

PATIENT
  Age: 75 Year
  Sex: Male
  Weight: 76.68 kg

DRUGS (15)
  1. ASPIRIN. [Concomitant]
     Active Substance: ASPIRIN
  2. VIT D [Concomitant]
     Active Substance: VITAMIN D NOS
  3. MAGNESIUM [Concomitant]
     Active Substance: MAGNESIUM
  4. COPPER [Concomitant]
     Active Substance: COPPER
  5. BUDESONIDE. [Concomitant]
     Active Substance: BUDESONIDE
  6. CALCIUM [Concomitant]
     Active Substance: CALCIUM
  7. TYLENOL [Concomitant]
     Active Substance: ACETAMINOPHEN
  8. KEPPRA [Concomitant]
     Active Substance: LEVETIRACETAM
  9. LIPITOR [Concomitant]
     Active Substance: ATORVASTATIN CALCIUM
  10. POTASSIUM [Concomitant]
     Active Substance: POTASSIUM
  11. ZINC. [Concomitant]
     Active Substance: ZINC
  12. NORTRIPTYLINE [Concomitant]
     Active Substance: NORTRIPTYLINE
  13. MULTIVITAMIN [Concomitant]
     Active Substance: VITAMINS
  14. IMODIUM [Concomitant]
     Active Substance: LOPERAMIDE HYDROCHLORIDE
  15. ZOLINZA [Suspect]
     Active Substance: VORINOSTAT
     Route: 048
     Dates: start: 20200331, end: 20200527

REACTIONS (1)
  - Diarrhoea [None]

NARRATIVE: CASE EVENT DATE: 20200527
